FAERS Safety Report 6011846-0 (Version None)
Quarter: 2008Q4

REPORT INFORMATION
  Report Type: 
  Country: None (occurrence: None)
  Receive Date: 20081218
  Receipt Date: 20081216
  Transmission Date: 20090506
  Serious: Yes (Death)
  Sender: FDA-Public Use
  Company Number: DE-WYE-G02801008

PATIENT

DRUGS (1)
  1. TORISEL [Suspect]
     Dosage: UNKNOWN
     Route: 042

REACTIONS (1)
  - DEATH [None]
